FAERS Safety Report 7606843-5 (Version None)
Quarter: 2011Q3

REPORT INFORMATION
  Report Type: 
  Country: None (occurrence: None)
  Receive Date: 20110713
  Receipt Date: 20110707
  Transmission Date: 20111222
  Serious: Yes (Other)
  Sender: FDA-Public Use
  Company Number: US-GLAXOSMITHKLINE-A0931623A

PATIENT
  Age: 72 Year
  Sex: Female

DRUGS (4)
  1. BLOOD TRANSFUSION [Concomitant]
  2. ANTIHYPERTENSIVE [Concomitant]
  3. AVANDIA [Suspect]
     Indication: TYPE 2 DIABETES MELLITUS
     Route: 048
  4. CONTRAST MEDIA [Suspect]
     Indication: COMPUTERISED TOMOGRAM
     Route: 065

REACTIONS (1)
  - RENAL FAILURE ACUTE [None]
